FAERS Safety Report 16933389 (Version 1)
Quarter: 2019Q4

REPORT INFORMATION
  Report Type: Spontaneous
  Country: NL (occurrence: NL)
  Receive Date: 20191018
  Receipt Date: 20191018
  Transmission Date: 20200122
  Serious: Yes (Hospitalization)
  Sender: FDA-Public Use
  Company Number: NL-TEVA-2019-NL-1122413

PATIENT
  Sex: Female
  Weight: 3 kg

DRUGS (2)
  1. PROMETHAZINE OMHULDE TABLET, 25 MG [Suspect]
     Active Substance: PROMETHAZINE HYDROCHLORIDE
     Dosage: 1X 25 MG DAY (50 MG ONCE IN 7-8)7-8)
     Dates: start: 20190807, end: 20190807
  2. PROMETHAZINE OMHULDE TABLET, 25 MG [Suspect]
     Active Substance: PROMETHAZINE HYDROCHLORIDE
     Indication: CHOLESTASIS OF PREGNANCY
     Dosage: 1X DAY 25 MG (SINGLE 50 MG AT 7-8)
     Dates: start: 20190730, end: 20190809

REACTIONS (3)
  - Body temperature abnormal [Recovered/Resolved]
  - Poor feeding infant [Recovered/Resolved]
  - Maternal exposure during pregnancy [Unknown]
